FAERS Safety Report 20351409 (Version 1)
Quarter: 2022Q1

REPORT INFORMATION
  Report Type: Spontaneous
  Country: DE (occurrence: None)
  Receive Date: 20220119
  Receipt Date: 20220119
  Transmission Date: 20220424
  Serious: Yes (Other)
  Sender: FDA-Public Use
  Company Number: DE-ROCHE-3002677

PATIENT
  Sex: Female

DRUGS (2)
  1. VALIUM [Suspect]
     Active Substance: DIAZEPAM
     Indication: Product used for unknown indication
     Dosage: HALF A TABLET 3X DAILY
     Route: 048
  2. SEROQUEL [Concomitant]
     Active Substance: QUETIAPINE FUMARATE

REACTIONS (8)
  - Bipolar disorder [Unknown]
  - Hunger [Unknown]
  - Thirst [Unknown]
  - Abdominal pain upper [Unknown]
  - Anxiety [Unknown]
  - General physical health deterioration [Unknown]
  - Accidental overdose [Unknown]
  - Off label use [Unknown]
